FAERS Safety Report 5538087-5 (Version None)
Quarter: 2007Q4

REPORT INFORMATION
  Report Type: 
  Country: None (occurrence: None)
  Receive Date: 20071207
  Receipt Date: 20071127
  Transmission Date: 20080405
  Serious: Yes (Other)
  Sender: FDA-Public Use
  Company Number: JP-PFIZER INC-2007100695

PATIENT
  Age: 21 Year
  Sex: Female

DRUGS (4)
  1. SOLANAX [Suspect]
     Route: 048
  2. OTHER HYPNOTICS AND SEDATIVES [Suspect]
  3. ALL OTHER THERAPEUTIC PRODUCTS [Suspect]
  4. DRUGS FOR TREATMENT OF PEPTIC ULCER [Suspect]

REACTIONS (2)
  - ALTERED STATE OF CONSCIOUSNESS [None]
  - SUICIDE ATTEMPT [None]
